FAERS Safety Report 21024692 (Version 2)
Quarter: 2022Q3

REPORT INFORMATION
  Report Type: Spontaneous
  Country: US (occurrence: US)
  Receive Date: 20220629
  Receipt Date: 20220718
  Transmission Date: 20221026
  Serious: No
  Sender: FDA-Public Use
  Company Number: US-KARYOPHARM-2022KPT000681

PATIENT

DRUGS (20)
  1. XPOVIO [Suspect]
     Active Substance: SELINEXOR
     Indication: Plasma cell myeloma
     Dosage: 100 MG, WEEKLY
     Route: 048
     Dates: start: 20220610
  2. ACYCLOVIR [Concomitant]
     Active Substance: ACYCLOVIR
  3. ADVAIR HFA [Concomitant]
     Active Substance: FLUTICASONE PROPIONATE\SALMETEROL XINAFOATE
  4. ALBUTEROL SULFATE [Concomitant]
     Active Substance: ALBUTEROL SULFATE
  5. CARVEDILOL [Concomitant]
     Active Substance: CARVEDILOL
  6. DECADRON [Concomitant]
     Active Substance: DEXAMETHASONE
  7. LOSARTAN [Concomitant]
     Active Substance: LOSARTAN
  8. NORVASC [Concomitant]
     Active Substance: AMLODIPINE BESYLATE
  9. OLANZAPINE [Concomitant]
     Active Substance: OLANZAPINE
  10. OXYCODONE [Concomitant]
     Active Substance: OXYCODONE
  11. POTASSIUM CHLORIDE [Concomitant]
     Active Substance: POTASSIUM CHLORIDE
  12. PREDNISOLONE ACETATE [Concomitant]
     Active Substance: PREDNISOLONE ACETATE
  13. PROCHLORPERAZINE MALEATE [Concomitant]
     Active Substance: PROCHLORPERAZINE MALEATE
  14. SULFAMETHOXAZOLE\TRIMETHOPRIM [Concomitant]
     Active Substance: SULFAMETHOXAZOLE\TRIMETHOPRIM
  15. TAMSULOSIN HYDROCHLORIDE [Concomitant]
     Active Substance: TAMSULOSIN HYDROCHLORIDE
  16. VYTORIN [Concomitant]
     Active Substance: EZETIMIBE\SIMVASTATIN
  17. ZOFRAN [Concomitant]
     Active Substance: ONDANSETRON HYDROCHLORIDE
  18. ZOLOFT [Concomitant]
     Active Substance: SERTRALINE HYDROCHLORIDE
  19. ZOMETA [Concomitant]
     Active Substance: ZOLEDRONIC ACID
  20. ACULAR [Concomitant]
     Active Substance: KETOROLAC TROMETHAMINE

REACTIONS (5)
  - Dysgeusia [Not Recovered/Not Resolved]
  - Nausea [Recovered/Resolved]
  - Decreased appetite [Not Recovered/Not Resolved]
  - Fatigue [Recovered/Resolved]
  - Dizziness [Recovered/Resolved]

NARRATIVE: CASE EVENT DATE: 20220601
